FAERS Safety Report 7242095-6 (Version None)
Quarter: 2011Q1

REPORT INFORMATION
  Report Type: 
  Country: None (occurrence: None)
  Receive Date: 20110124
  Receipt Date: 20110119
  Transmission Date: 20110831
  Serious: Yes (Hospitalization)
  Sender: FDA-Public Use
  Company Number: CL-PFIZER INC-2011013985

PATIENT
  Age: 21 Year
  Sex: Female

DRUGS (1)
  1. AZULFIDINE [Suspect]
     Indication: PROCTITIS ULCERATIVE
     Dosage: UNK
     Dates: start: 20100101

REACTIONS (1)
  - HYPERSENSITIVITY [None]
